FAERS Safety Report 6575275-3 (Version None)
Quarter: 2010Q1

REPORT INFORMATION
  Report Type: 
  Country: None (occurrence: None)
  Receive Date: 20100209
  Receipt Date: 20100128
  Transmission Date: 20100710
  Serious: Yes (Other)
  Sender: FDA-Public Use
  Company Number: AT-ROCHE-665137

PATIENT
  Sex: Female
  Weight: 80 kg

DRUGS (5)
  1. ACTEMRA [Suspect]
     Indication: RHEUMATOID ARTHRITIS
     Dosage: FORM: INFUSION.  STARTING DOSE: 8 MG/KG.
     Route: 042
     Dates: start: 20090630
  2. ACTEMRA [Suspect]
     Dosage: FORM: INFUSION
     Route: 042
     Dates: start: 20090730
  3. ACTEMRA [Suspect]
     Dosage: FORM: INFUSION
     Route: 042
     Dates: start: 20090826
  4. METHOTREXATE [Concomitant]
     Route: 048
  5. DICLOFENAC [Concomitant]
     Dosage: NSAIDS
     Route: 048

REACTIONS (2)
  - ERYSIPELAS [None]
  - ORAL HERPES [None]
